FAERS Safety Report 22135460 (Version 2)
Quarter: 2023Q1

REPORT INFORMATION
  Report Type: Spontaneous
  Country: US (occurrence: US)
  Receive Date: 20230324
  Receipt Date: 20230327
  Transmission Date: 20230418
  Serious: Yes (Other)
  Sender: FDA-Public Use
  Company Number: US-CSLP-27100783613-V12938068-4

PATIENT
  Age: 61 Year
  Sex: Female

DRUGS (8)
  1. ANTICOAGULANT SODIUM CITRATE [Suspect]
     Active Substance: SODIUM CITRATE
     Indication: Anticoagulant therapy
     Route: 050
     Dates: start: 20230314, end: 20230314
  2. METFORMIN [Concomitant]
     Active Substance: METFORMIN HYDROCHLORIDE
     Indication: Diabetes mellitus
  3. LISINOPRIL [Concomitant]
     Active Substance: LISINOPRIL
     Indication: Diabetes prophylaxis
  4. PRAVASTATIN [Concomitant]
     Active Substance: PRAVASTATIN
     Indication: Diabetes mellitus
  5. ZOLPIDEM [Concomitant]
     Active Substance: ZOLPIDEM TARTRATE
     Indication: Sleep disorder
  6. XANAX [Concomitant]
     Active Substance: ALPRAZOLAM
     Indication: Sleep disorder
     Route: 048
  7. TRINTELLIX [Concomitant]
     Active Substance: VORTIOXETINE HYDROBROMIDE
     Indication: Antidepressant therapy
  8. ADDERALL [Concomitant]
     Active Substance: AMPHETAMINE ASPARTATE\AMPHETAMINE SULFATE\DEXTROAMPHETAMINE SACCHARATE\DEXTROAMPHETAMINE SULFATE
     Indication: Attention deficit hyperactivity disorder

REACTIONS (9)
  - Loss of consciousness [Unknown]
  - Hyperhidrosis [Unknown]
  - Feeling hot [Unknown]
  - Dyskinesia [Unknown]
  - Tetany [Unknown]
  - Skin discolouration [Unknown]
  - Muscle twitching [Unknown]
  - Haematoma [Unknown]
  - Pallor [Unknown]

NARRATIVE: CASE EVENT DATE: 20230314
